FAERS Safety Report 9105240 (Version 1)
Quarter: 2013Q1

REPORT INFORMATION
  Report Type: Spontaneous
  Country: RU (occurrence: RU)
  Receive Date: 20130220
  Receipt Date: 20130220
  Transmission Date: 20140127
  Serious: Yes (Other)
  Sender: FDA-Public Use
  Company Number: RU-JNJFOC-20130110687

PATIENT
  Sex: 0

DRUGS (5)
  1. FENTANYL CITRATE [Suspect]
     Indication: ANAESTHESIA
     Dosage: 2 UG/ML
     Route: 008
  2. PARACETAMOL [Suspect]
     Route: 042
  3. PARACETAMOL [Suspect]
     Indication: ANALGESIC THERAPY
     Dosage: 2 UG/ML
     Route: 042
  4. ROPIVACAINE [Suspect]
     Indication: ANAESTHESIA
     Route: 008
  5. KETOROLAC [Suspect]
     Indication: PRODUCT USED FOR UNKNOWN INDICATION
     Route: 030

REACTIONS (4)
  - Urinary retention [Unknown]
  - Incorrect route of drug administration [Unknown]
  - Dyspepsia [Unknown]
  - Pruritus [Unknown]
